FAERS Safety Report 9337121 (Version 1)
Quarter: 2013Q2

REPORT INFORMATION
  Report Type: Spontaneous
  Country: US (occurrence: US)
  Receive Date: 20130607
  Receipt Date: 20130607
  Transmission Date: 20140414
  Serious: No
  Sender: FDA-Public Use
  Company Number: US-BAYER-2013-067424

PATIENT
  Sex: Female

DRUGS (2)
  1. ULTRAVIST INJECTION [Suspect]
     Indication: COMPUTERISED TOMOGRAM
  2. ULTRAVIST INJECTION [Suspect]
     Indication: COMPUTERISED TOMOGRAM ABDOMEN

REACTIONS (1)
  - Urticaria [None]
